FAERS Safety Report 13102435 (Version 1)
Quarter: 2017Q1

REPORT INFORMATION
  Report Type: Not Available
  Country: None (occurrence: US)
  Receive Date: 20170110
  Receipt Date: 20170110
  Transmission Date: 20170428
  Serious: Yes (Disabling, Other)
  Sender: FDA-Public Use
  Company Number: US-AKORN-46149

PATIENT
  Sex: Female

DRUGS (1)
  1. CYCLOPENTOLATE HYDROCHLORIDE 2% OPHTHALMIC SOLUTION, USP [Suspect]
     Active Substance: CYCLOPENTOLATE HYDROCHLORIDE

REACTIONS (4)
  - Delirium [Recovered/Resolved]
  - Anticholinergic syndrome [Recovered/Resolved]
  - Drug effect incomplete [Unknown]
  - Confusional state [Recovered/Resolved]
